FAERS Safety Report 6067468-9 (Version None)
Quarter: 2009Q1

REPORT INFORMATION
  Report Type: 
  Country: None (occurrence: None)
  Receive Date: 20090205
  Receipt Date: 20090126
  Transmission Date: 20090719
  Serious: Yes (Death)
  Sender: FDA-Public Use
  Company Number: US-ELI_LILLY_AND_COMPANY-US200901005599

PATIENT
  Age: 55 Year
  Sex: Male

DRUGS (4)
  1. ZYPREXA [Suspect]
  2. TIAGABINE HCL [Concomitant]
  3. RISPERIDONE [Concomitant]
  4. BENZTROPINE MESYLATE [Concomitant]

REACTIONS (1)
  - DEATH [None]
